FAERS Safety Report 17443840 (Version 1)
Quarter: 2020Q1

REPORT INFORMATION
  Report Type: Spontaneous
  Country: US (occurrence: US)
  Receive Date: 20200220
  Receipt Date: 20200220
  Transmission Date: 20200409
  Serious: No
  Sender: FDA-Public Use
  Company Number: None

PATIENT
  Age: 77 Year
  Sex: Female
  Weight: 92.7 kg

DRUGS (11)
  1. POTASSIUM CHLORIDE ER [Concomitant]
     Active Substance: POTASSIUM CHLORIDE
  2. RESPIMAT [Concomitant]
  3. FASLODEX [Concomitant]
     Active Substance: FULVESTRANT
  4. VITAMIN D3 [Concomitant]
     Active Substance: CHOLECALCIFEROL
  5. VITAMIN C [Concomitant]
     Active Substance: ASCORBIC ACID
  6. DYAZIDE [Concomitant]
     Active Substance: HYDROCHLOROTHIAZIDE\TRIAMTERENE
  7. ELIQUIS [Concomitant]
     Active Substance: APIXABAN
  8. KISQALI [Suspect]
     Active Substance: RIBOCICLIB
  9. AMLODIPINE [Concomitant]
     Active Substance: AMLODIPINE BESYLATE
  10. CARVEDILOL. [Concomitant]
     Active Substance: CARVEDILOL
  11. VITAMIN B12 [Concomitant]
     Active Substance: CYANOCOBALAMIN

REACTIONS (5)
  - Cough [None]
  - Fatigue [None]
  - Nausea [None]
  - Dyspnoea [None]
  - Diarrhoea [None]

NARRATIVE: CASE EVENT DATE: 20200220
